FAERS Safety Report 15912766 (Version 2)
Quarter: 2019Q4

REPORT INFORMATION
  Report Type: Report from Study
  Country: GB (occurrence: GB)
  Receive Date: 20190204
  Receipt Date: 20191023
  Transmission Date: 20200122
  Serious: Yes (Hospitalization)
  Sender: FDA-Public Use
  Company Number: GB-PFIZER INC-2019043561

PATIENT
  Age: 64 Year

DRUGS (11)
  1. TAZOCIN [Suspect]
     Active Substance: PIPERACILLIN SODIUM\TAZOBACTAM SODIUM
     Dosage: 13.5 G, 1X/DAY (PICC/MIDLINE, 6 WEEKS TOTAL COURSE AND PRESUMED END DATE- 14JAN2018)
     Route: 042
     Dates: start: 20181203, end: 20181231
  2. TEICOPLANIN [Suspect]
     Active Substance: TEICOPLANIN
     Dosage: 400 MG, 1X/DAY (PICC/MIDLINE 6 WEEKS TOTAL COURSE AND PRESUMED END DATE- 14JAN2018)
     Route: 042
     Dates: start: 20181203, end: 20181231
  3. SODIUM CITRATE. [Suspect]
     Active Substance: SODIUM CITRATE
     Dosage: UNK
     Route: 042
     Dates: end: 20181231
  4. SODIUM CITRATE. [Suspect]
     Active Substance: SODIUM CITRATE
     Indication: MEDICATION DILUTION
     Dosage: UNK
     Route: 042
     Dates: start: 201812
  5. PIPERACILLIN/TAZOBACTAM [Suspect]
     Active Substance: PIPERACILLIN SODIUM\TAZOBACTAM SODIUM
     Dosage: UNK
     Route: 042
     Dates: end: 20181231
  6. SODIUM CHLORIDE. [Suspect]
     Active Substance: SODIUM CHLORIDE
     Indication: MEDICATION DILUTION
     Dosage: 230 ML, UNK
     Route: 042
     Dates: end: 20181231
  7. SODIUM CHLORIDE. [Suspect]
     Active Substance: SODIUM CHLORIDE
     Dosage: UNK
     Route: 042
  8. SODIUM CITRATE. [Suspect]
     Active Substance: SODIUM CITRATE
     Dosage: UNK
     Route: 042
  9. PIPERACILLIN/TAZOBACTAM [Suspect]
     Active Substance: PIPERACILLIN SODIUM\TAZOBACTAM SODIUM
     Dosage: 13.5 G, UNK
     Route: 042
     Dates: start: 201812
  10. SODIUM CHLORIDE. [Suspect]
     Active Substance: SODIUM CHLORIDE
     Dosage: UNK
     Route: 042
     Dates: end: 20181231
  11. PIPERACILLIN/TAZOBACTAM [Suspect]
     Active Substance: PIPERACILLIN SODIUM\TAZOBACTAM SODIUM
     Dosage: UNK
     Route: 042

REACTIONS (3)
  - Rash erythematous [Unknown]
  - Rash pruritic [Unknown]
  - Rash [Unknown]

NARRATIVE: CASE EVENT DATE: 20181227
